FAERS Safety Report 9096528 (Version 3)
Quarter: 2013Q2

REPORT INFORMATION
  Report Type: Report from Study
  Country: NL (occurrence: NL)
  Receive Date: 20130211
  Receipt Date: 20130402
  Transmission Date: 20140414
  Serious: Yes (Other)
  Sender: FDA-Public Use
  Company Number: PHHO2013NL002126

PATIENT
  Age: 44 Year
  Sex: Female
  Weight: 60 kg

DRUGS (2)
  1. FTY [Suspect]
     Indication: MULTIPLE SCLEROSIS
     Dosage: 0.5 MG, QD
     Route: 048
     Dates: start: 20110322, end: 20111020
  2. SYMMETREL [Concomitant]
     Indication: FATIGUE
     Dosage: 100 MG, UNK
     Dates: start: 20110901, end: 20111020

REACTIONS (1)
  - Basal cell carcinoma [Recovered/Resolved]
